FAERS Safety Report 19392909 (Version 1)
Quarter: 2021Q2

REPORT INFORMATION
  Report Type: Spontaneous
  Country: US (occurrence: US)
  Receive Date: 20210609
  Receipt Date: 20210609
  Transmission Date: 20210717
  Serious: No
  Sender: FDA-Public Use
  Company Number: US-AUROBINDO-AUR-APL-2020-054360

PATIENT

DRUGS (1)
  1. ACETAMINOPHEN AND CODEINE [Suspect]
     Active Substance: ACETAMINOPHEN\CODEINE PHOSPHATE
     Indication: TOOTHACHE
     Dosage: UNK, 4 PILLS TOTAL AND ADMINISTERED ONE AT 3:00 AND NOW IT IS 6:24
     Route: 065

REACTIONS (5)
  - Blood pressure increased [Unknown]
  - Feeling abnormal [Unknown]
  - Drug ineffective [Unknown]
  - Product substitution issue [Unknown]
  - Abdominal pain upper [Unknown]
